FAERS Safety Report 7505384-3 (Version None)
Quarter: 2011Q2

REPORT INFORMATION
  Report Type: 
  Country: None (occurrence: None)
  Receive Date: 20110526
  Receipt Date: 20091220
  Transmission Date: 20111010
  Serious: Yes (Death, Other)
  Sender: FDA-Public Use
  Company Number: US-BAYER-200942980NA

PATIENT
  Age: 78 Year
  Sex: Female
  Weight: 68 kg

DRUGS (25)
  1. TRASYLOL [Suspect]
     Indication: MITRAL VALVE REPLACEMENT
     Dosage: 200 ML (CARDIOPULMONARY BYPASS PRIME)
     Route: 042
     Dates: start: 20050331, end: 20050331
  2. ACETYLSALICYLIC ACID SRT [Concomitant]
     Dosage: 81 MG, QD
  3. EPHEDRINE [Concomitant]
     Dosage: UNK (TITRATED)
     Route: 042
     Dates: start: 20050331, end: 20050331
  4. LASIX [Concomitant]
     Dosage: 20 MG, QD PRN
     Dates: start: 20050221
  5. HEPARIN [Concomitant]
     Dosage: 35000 U, UNK
     Route: 042
     Dates: start: 20050331, end: 20050331
  6. DOPAMINE HCL [Concomitant]
     Dosage: UNK (TITRATED)
     Route: 042
     Dates: start: 20050331
  7. CEFAZOLIN [Concomitant]
     Dosage: 3 G, UNK
     Route: 042
     Dates: start: 20050331
  8. PLATELETS [Concomitant]
     Dosage: 2 U, UNK
     Route: 042
     Dates: start: 20050331, end: 20050331
  9. TRASYLOL [Suspect]
     Indication: CORONARY ARTERY BYPASS
     Dosage: 1 ML, ONCE (INITIAL DOSE)
     Route: 042
     Dates: start: 20050331, end: 20050331
  10. LISINOPRIL [Concomitant]
     Dosage: 5 MG, QD
  11. METOPROLOL TARTRATE [Concomitant]
     Dosage: 25 MG, BID
     Dates: start: 20050214
  12. PANCURONIUM BROMIDE [Concomitant]
     Dosage: UNK
     Route: 042
     Dates: start: 20050331, end: 20050331
  13. NITROGLYCERIN [Concomitant]
     Dosage: UNK (TITRATED)
     Route: 042
     Dates: start: 20050331, end: 20050331
  14. LIDOCAINE [Concomitant]
     Dosage: 150 UNK
     Route: 042
     Dates: start: 20050331, end: 20050331
  15. MANNITOL [Concomitant]
     Dosage: VIA BYPASS
     Dates: start: 20050331, end: 20050331
  16. PHENYLEPHRINE HCL [Concomitant]
     Dosage: UNK (TITRATED)
     Route: 042
     Dates: start: 20050331
  17. PROTAMINE SULFATE [Concomitant]
     Dosage: 400 MG, UNK
     Route: 042
     Dates: start: 20050331, end: 20050331
  18. RED BLOOD CELLS [Concomitant]
     Dosage: 3 U, UNK
     Route: 042
     Dates: start: 20050331, end: 20050331
  19. VANCOMYCIN [Concomitant]
     Dosage: 1 G, UNK
  20. MILRINONE [Concomitant]
     Dosage: 150 MG, UNK
     Route: 042
     Dates: start: 20050331, end: 20050331
  21. NOREPINEPHRINE BITARTRATE [Concomitant]
     Dosage: UNK (TITRATED)
     Route: 042
     Dates: start: 20050331
  22. COUMADIN [Concomitant]
     Dosage: UNK
     Dates: start: 20050214
  23. MAGNESIUM SULFATE [Concomitant]
     Dosage: 1 G, UNK
     Route: 042
     Dates: start: 20050331, end: 20050331
  24. FRESH FROZEN PLASMA [Concomitant]
     Dosage: 2 U, UNK
     Route: 042
     Dates: start: 20050331, end: 20050331
  25. OMNIPAQUE 140 [Concomitant]
     Dosage: UNK
     Route: 042
     Dates: start: 20050329, end: 20050329

REACTIONS (6)
  - RENAL FAILURE [None]
  - RENAL FAILURE ACUTE [None]
  - DEATH [None]
  - INJURY [None]
  - PAIN [None]
  - UNEVALUABLE EVENT [None]
